FAERS Safety Report 8660980 (Version 4)
Quarter: 2012Q4

REPORT INFORMATION
  Report Type: 
  Country: JP (occurrence: JP)
  Receive Date: 20120711
  Receipt Date: 20120904
  Transmission Date: 20130627
  Serious: Yes (Hospitalization)
  Sender: FDA-Public Use
  Company Number: JP-009507513-1207USA00142

PATIENT

DRUGS (16)
  1. ELAVIL [Suspect]
     Dosage: 10 mg, qd
     Route: 048
     Dates: start: 20120523, end: 20120604
  2. GASTER [Suspect]
     Dosage: 40 mg, qd
     Route: 048
     Dates: start: 20120530, end: 20120604
  3. CHLOPHEDIANOL HYDROCHLORIDE [Suspect]
     Indication: HYPERTONIC BLADDER
     Dosage: 24 mg, qd
     Route: 048
     Dates: start: 20120523, end: 20120604
  4. CHLOPHEDIANOL HYDROCHLORIDE [Suspect]
     Indication: POLLAKIURIA
  5. UNSPECIFIED INGREDIENT [Suspect]
     Indication: NASOPHARYNGITIS
     Dosage: 3 g, UNK
     Route: 048
     Dates: start: 20120530, end: 20120604
  6. URITOS [Concomitant]
     Indication: POLLAKIURIA
     Dosage: 10 mg, qd
     Route: 048
     Dates: start: 20120530, end: 20120604
  7. GASMOTIN [Concomitant]
     Dosage: 15 mg, qd
     Route: 048
     Dates: start: 20120530, end: 20120604
  8. REBAMIPIDE [Concomitant]
     Dosage: 300 mg, qd
     Route: 048
     Dates: start: 20120530, end: 20120604
  9. FORSENID [Concomitant]
     Dosage: 24 mg, qd
     Route: 048
     Dates: start: 20120530, end: 20120604
  10. FLUCONAZOLE [Concomitant]
     Dosage: 100 mg, qd
     Route: 048
     Dates: start: 201206, end: 20120604
  11. D-ALPHA [Concomitant]
     Dosage: UNK
     Route: 048
     Dates: start: 201206, end: 20120604
  12. LASIX (FUROSEMIDE) [Concomitant]
     Dosage: 20 mg, qd
     Route: 048
     Dates: start: 201206, end: 20120604
  13. MAGNESIUM OXIDE [Concomitant]
     Dosage: 3 g, qd
     Dates: start: 201206, end: 20120604
  14. DAIPHEN [Concomitant]
     Dosage: UNK
     Route: 048
     Dates: start: 201206, end: 20120604
  15. BONALON [Concomitant]
     Dosage: 35 mg, qd
     Route: 048
     Dates: start: 201206, end: 20120604
  16. PREDNISOLONE [Concomitant]
     Dosage: 5 mg, qd
     Route: 048
     Dates: start: 201206, end: 20120604

REACTIONS (2)
  - Stevens-Johnson syndrome [Recovering/Resolving]
  - Nasopharyngitis [None]
